FAERS Safety Report 9514632 (Version 2)
Quarter: 2014Q1

REPORT INFORMATION
  Report Type: Spontaneous
  Country: US (occurrence: None)
  Receive Date: 20130305
  Receipt Date: 20140306
  Transmission Date: 20141002
  Serious: Yes (Hospitalization)
  Sender: FDA-Public Use
  Company Number: 163-21880-12123037

PATIENT
  Age: 60 Year
  Sex: Male

DRUGS (19)
  1. REVLIMID (LENALIDOMIDE) (10 MILLIGRAM, CAPSULES) [Suspect]
     Indication: PLASMA CELL MYELOMA
     Route: 048
     Dates: start: 20110909
  2. ASPIRIN (ACETYLSALICYLIC ACID) [Concomitant]
  3. FLEXERIL (CYCLOBENZAPRINE HYDROCHLORIDE) [Concomitant]
  4. KLONOPIN (CLONAZEPAM) (TABLETS) [Concomitant]
  5. OXYCONTIN (OXYCODONE HYDROCHLORIDE) [Concomitant]
  6. PERCOCET (OXYCOCET) [Concomitant]
  7. TOFRANIL (IMIPRAMINE HYDROCHLORIDE) [Concomitant]
  8. B 12 (CYANOCOBALAMIN) [Concomitant]
  9. TURMERIC [Concomitant]
  10. CALCIUM + VITAMIN D (LEKOVIT CA) [Concomitant]
  11. CLARITIN (LORATADINE) [Concomitant]
  12. VALTREX (VALACICLOVIR HYDROCHLORIDE) [Concomitant]
  13. OXYCODONE [Concomitant]
  14. ATIVAN (LORAZEPAM) [Concomitant]
  15. LANSOPRAZOLE [Concomitant]
  16. ALEVE (NAPROXEN SODIUM) [Concomitant]
  17. ACAI (EUTERPE OLERACEA FRUIT) (POWDER) [Concomitant]
  18. ADVIL COLD AND SINUS (CO-ADVIL) [Concomitant]
  19. ASTRAGALUS (ASTRAGALUS COMPLEX) [Concomitant]

REACTIONS (13)
  - Thrombosis [None]
  - Lymphoedema [None]
  - Intervertebral disc protrusion [None]
  - Hernia [None]
  - Dysphonia [None]
  - Dysphagia [None]
  - Oedema peripheral [None]
  - Pain in extremity [None]
  - Paraesthesia [None]
  - Blister [None]
  - Abdominal pain upper [None]
  - Muscle spasms [None]
  - Leukopenia [None]
